FAERS Safety Report 15315787 (Version 1)
Quarter: 2018Q3

REPORT INFORMATION
  Report Type: Report from Study
  Country: US (occurrence: US)
  Receive Date: 20180824
  Receipt Date: 20180824
  Transmission Date: 20181010
  Serious: Yes (Other)
  Sender: FDA-Public Use
  Company Number: PHHY2018US079584

PATIENT
  Age: 47 Year
  Sex: Female

DRUGS (1)
  1. COSENTYX [Suspect]
     Active Substance: SECUKINUMAB
     Indication: PSORIASIS
     Dosage: 300 MG, QW
     Route: 058
     Dates: start: 201806

REACTIONS (12)
  - Injection site pain [Unknown]
  - Mood altered [Unknown]
  - Immune system disorder [Unknown]
  - Injection site bruising [Unknown]
  - Fatigue [Unknown]
  - Hypersensitivity [Unknown]
  - Injection site haemorrhage [Unknown]
  - Ear infection [Unknown]
  - Ear pain [Unknown]
  - Sinusitis [Unknown]
  - Diabetes mellitus [Unknown]
  - Depression [Unknown]
